FAERS Safety Report 6604055-5 (Version None)
Quarter: 2010Q1

REPORT INFORMATION
  Report Type: 
  Country: None (occurrence: None)
  Receive Date: 20100226
  Receipt Date: 20090429
  Transmission Date: 20100710
  Serious: No
  Sender: FDA-Public Use
  Company Number: A0781304A

PATIENT
  Age: 31 Year
  Sex: Female

DRUGS (3)
  1. LAMICTAL CD [Suspect]
     Dosage: 50MG PER DAY
     Route: 048
     Dates: start: 20090418, end: 20090424
  2. DILANTIN [Concomitant]
  3. FOLIC ACID [Concomitant]

REACTIONS (11)
  - CHEST DISCOMFORT [None]
  - FACE OEDEMA [None]
  - GINGIVAL PAIN [None]
  - GINGIVAL SWELLING [None]
  - LIP DISORDER [None]
  - ORAL DISCOMFORT [None]
  - ORAL MUCOSAL DISCOLOURATION [None]
  - ORAL PAIN [None]
  - TONGUE DISCOLOURATION [None]
  - TONGUE ULCERATION [None]
  - WHEEZING [None]
